FAERS Safety Report 17160318 (Version 1)
Quarter: 2019Q4

REPORT INFORMATION
  Report Type: Spontaneous
  Country: CN (occurrence: CN)
  Receive Date: 20191216
  Receipt Date: 20191216
  Transmission Date: 20200122
  Serious: Yes (Hospitalization)
  Sender: FDA-Public Use
  Company Number: CN-PFIZER INC-2019539718

PATIENT
  Age: 27 Year
  Sex: Female

DRUGS (3)
  1. TE FU BI KE [Suspect]
     Active Substance: LEVOFLOXACIN
     Indication: TUBERCULOSIS
     Dosage: 4 DF, 1X/DAY
     Route: 048
     Dates: start: 20191118, end: 20191203
  2. ETHAMBUTOL HYDROCHLORIDE. [Suspect]
     Active Substance: ETHAMBUTOL HYDROCHLORIDE
     Indication: TUBERCULOSIS
     Dosage: 3 DF, 1X/DAY
     Route: 048
     Dates: start: 20191118, end: 20191203
  3. LINEZOLID. [Suspect]
     Active Substance: LINEZOLID
     Indication: TUBERCULOSIS
     Dosage: 1 DF, 2X/DAY
     Route: 040
     Dates: start: 20191118, end: 20191203

REACTIONS (7)
  - Drug-induced liver injury [Recovering/Resolving]
  - Product use in unapproved indication [Unknown]
  - Vomiting [Unknown]
  - Off label use [Unknown]
  - Blood bilirubin increased [Recovering/Resolving]
  - Nausea [Unknown]
  - Asthenia [Unknown]

NARRATIVE: CASE EVENT DATE: 201911
